FAERS Safety Report 7402893-2 (Version None)
Quarter: 2011Q1

REPORT INFORMATION
  Report Type: 
  Country: None (occurrence: None)
  Receive Date: 20110331
  Receipt Date: 20110321
  Transmission Date: 20110831
  Serious: Yes (Hospitalization, Other)
  Sender: FDA-Public Use
  Company Number: JPI-P-012819

PATIENT
  Age: 57 Year
  Sex: Male
  Weight: 85.7298 kg

DRUGS (6)
  1. ARMODAFINIL [Concomitant]
  2. DILTIAZEM [Concomitant]
  3. IMIPRAMINE [Concomitant]
  4. XYREM [Suspect]
     Indication: NARCOLEPSY
     Dosage: 4.5 GM (2.25 GM,2 IN 1 D),ORAL ; 6 GM (3 GM,2 IN 1 D),ORAL
     Route: 048
     Dates: start: 20101009, end: 20101227
  5. XYREM [Suspect]
     Indication: NARCOLEPSY
     Dosage: 4.5 GM (2.25 GM,2 IN 1 D),ORAL ; 6 GM (3 GM,2 IN 1 D),ORAL
     Route: 048
     Dates: start: 20101228, end: 20110307
  6. METHYLPHENIDATE [Concomitant]

REACTIONS (15)
  - GASTRIC DISORDER [None]
  - FEELING ABNORMAL [None]
  - CORONARY ARTERY OCCLUSION [None]
  - INITIAL INSOMNIA [None]
  - DECREASED APPETITE [None]
  - GAIT DISTURBANCE [None]
  - AORTIC DILATATION [None]
  - INSOMNIA [None]
  - PERIORBITAL DISORDER [None]
  - FEELING DRUNK [None]
  - MYOCARDIAL INFARCTION [None]
  - SOMNAMBULISM [None]
  - ABNORMAL SLEEP-RELATED EVENT [None]
  - ENURESIS [None]
  - WEIGHT DECREASED [None]
